FAERS Safety Report 6474494-4 (Version None)
Quarter: 2009Q4

REPORT INFORMATION
  Report Type: 
  Country: None (occurrence: None)
  Receive Date: 20091204
  Receipt Date: 20091130
  Transmission Date: 20100525
  Serious: Yes (Death)
  Sender: FDA-Public Use
  Company Number: FR-ASTRAZENECA-2009SE29447

PATIENT
  Age: 78 Year
  Sex: Female

DRUGS (12)
  1. NEXIUM [Suspect]
     Indication: GASTRITIS
     Route: 048
     Dates: start: 20080801
  2. AUGMENTIN [Suspect]
     Indication: ERYSIPELAS
     Dosage: 1 G,  TEN DAYS PER MONTH
     Route: 048
     Dates: start: 20090804, end: 20091007
  3. PREVISCAN [Suspect]
     Indication: ATRIAL FIBRILLATION
     Route: 048
     Dates: start: 19930101
  4. TRIATEC [Suspect]
     Indication: HYPERTENSION
     Route: 048
     Dates: start: 20090403, end: 20091007
  5. LEVOTHYROXINE SODIUM [Suspect]
     Indication: HYPOTHYROIDISM
     Route: 048
     Dates: start: 19930101
  6. CORDARONE [Suspect]
     Indication: ATRIAL FIBRILLATION
     Dosage: 200 MG,  FIVE DAY OUT OF SEVEN
     Route: 048
     Dates: start: 19941101, end: 20091027
  7. LASILIX [Suspect]
     Indication: OEDEMA DUE TO CARDIAC DISEASE
     Route: 048
     Dates: start: 20080101, end: 20091007
  8. KALEORID [Suspect]
     Indication: HYPOKALAEMIA
     Route: 048
     Dates: start: 20080101, end: 20091007
  9. SPECIAFOLDINE [Suspect]
     Indication: ANAEMIA
     Route: 048
     Dates: end: 20091007
  10. DAFALGAN [Suspect]
     Indication: ANALGESIC INTERVENTION SUPPORTIVE THERAPY
     Route: 048
     Dates: start: 19900101, end: 20091007
  11. TEMESTA [Suspect]
     Indication: ANXIETY
     Route: 048
     Dates: end: 20091007
  12. LANTUS [Suspect]
     Indication: INSULIN-REQUIRING TYPE 2 DIABETES MELLITUS
     Route: 058
     Dates: start: 20040101, end: 20091024

REACTIONS (1)
  - CLOSTRIDIUM DIFFICILE COLITIS [None]
